FAERS Safety Report 11375562 (Version 2)
Quarter: 2015Q3

REPORT INFORMATION
  Report Type: Report from Study
  Country: US (occurrence: US)
  Receive Date: 20150813
  Receipt Date: 20150824
  Transmission Date: 20151125
  Serious: Yes (Hospitalization)
  Sender: FDA-Public Use
  Company Number: PHEH2015US001918

PATIENT
  Sex: Female

DRUGS (4)
  1. TOBI [Suspect]
     Active Substance: TOBRAMYCIN
     Indication: CHRONIC OBSTRUCTIVE PULMONARY DISEASE
     Dosage: 1 DF, BID
     Route: 055
  2. TOBI PODHALER [Suspect]
     Active Substance: TOBRAMYCIN
     Indication: PRODUCT USED FOR UNKNOWN INDICATION
     Route: 065
  3. TOBI [Suspect]
     Active Substance: TOBRAMYCIN
     Indication: PSEUDOMONAS INFECTION
  4. TOBI [Suspect]
     Active Substance: TOBRAMYCIN
     Indication: RESPIRATORY DISORDER

REACTIONS (6)
  - Productive cough [Unknown]
  - Feeling abnormal [Unknown]
  - Dyspnoea [Unknown]
  - Sputum discoloured [Unknown]
  - Infection [Unknown]
  - Product use issue [Unknown]
